FAERS Safety Report 11805971 (Version 1)
Quarter: 2015Q4

REPORT INFORMATION
  Report Type: Report from Study
  Country: US (occurrence: US)
  Receive Date: 20151207
  Receipt Date: 20151207
  Transmission Date: 20160305
  Serious: Yes (Other)
  Sender: FDA-Public Use
  Company Number: US-BAYER-2015-376386

PATIENT
  Age: 66 Year
  Sex: Male

DRUGS (4)
  1. NEXAVAR [Suspect]
     Active Substance: SORAFENIB
     Indication: HEPATOBLASTOMA
     Dosage: 200 MG, BID (1 TABLET TWICE DAILY)
     Route: 048
     Dates: start: 20150627
  2. NEXAVAR [Suspect]
     Active Substance: SORAFENIB
     Indication: HEPATOBLASTOMA
     Dosage: 400 MG, BID
     Route: 048
     Dates: start: 20150626
  3. NEXAVAR [Suspect]
     Active Substance: SORAFENIB
     Indication: HEPATOBLASTOMA
     Dosage: 800 MG, QD (2X400 MG)
     Route: 048
     Dates: start: 2015, end: 20150820
  4. NEXAVAR [Suspect]
     Active Substance: SORAFENIB
     Indication: HEPATOBLASTOMA
     Dosage: 200 MG, BID
     Route: 048

REACTIONS (5)
  - Diarrhoea [Recovered/Resolved]
  - Off label use [None]
  - Fatigue [Not Recovered/Not Resolved]
  - Hepatic failure [None]
  - Drug intolerance [None]

NARRATIVE: CASE EVENT DATE: 20150628
